FAERS Safety Report 6053035-X (Version None)
Quarter: 2009Q1

REPORT INFORMATION
  Report Type: 
  Country: None (occurrence: None)
  Receive Date: 20090127
  Receipt Date: 20090116
  Transmission Date: 20090719
  Serious: Yes (Hospitalization)
  Sender: FDA-Public Use
  Company Number: DE-JNJFOC-20090104322

PATIENT
  Age: 65 Year
  Sex: Female
  Weight: 83 kg

DRUGS (3)
  1. REMICADE [Suspect]
     Indication: POLYARTHRITIS
     Route: 042
  2. METHOTREXATE [Concomitant]
     Indication: POLYARTHRITIS
  3. PREDNISOLONE [Concomitant]
     Indication: POLYARTHRITIS

REACTIONS (1)
  - BENIGN NEOPLASM OF THYROID GLAND [None]
